FAERS Safety Report 16367378 (Version 3)
Quarter: 2019Q3

REPORT INFORMATION
  Report Type: Spontaneous
  Country: US (occurrence: US)
  Receive Date: 20190529
  Receipt Date: 20190809
  Transmission Date: 20191004
  Serious: No
  Sender: FDA-Public Use
  Company Number: US-PFIZER INC-2019226283

PATIENT
  Age: 67 Year
  Sex: Female
  Weight: 65.76 kg

DRUGS (2)
  1. PREMARIN [Suspect]
     Active Substance: ESTROGENS, CONJUGATED
     Indication: VULVOVAGINAL DRYNESS
     Dosage: PEA SIZE PUT ON FINGER AND APPLY SMALL OUTSIDE OF FINGERTIP VAGINAL AREA
     Route: 067
     Dates: start: 2015
  2. PREMARIN [Suspect]
     Active Substance: ESTROGENS, CONJUGATED
     Indication: BLOOD OESTROGEN DECREASED
     Dosage: PEA SIZE PUT ON FINGER AND APPLY SMALL OUTSIDE OF FINGERTIP VAGINAL AREA
     Route: 067
     Dates: start: 2015

REACTIONS (2)
  - Expired product administered [Unknown]
  - Visual impairment [Unknown]

NARRATIVE: CASE EVENT DATE: 2019
